FAERS Safety Report 18904453 (Version 1)
Quarter: 2021Q1

REPORT INFORMATION
  Report Type: Report from Study
  Country: CR (occurrence: CR)
  Receive Date: 20210217
  Receipt Date: 20210217
  Transmission Date: 20210420
  Serious: Yes (Other)
  Sender: FDA-Public Use
  Company Number: NVSC2021CR032991

PATIENT
  Age: 92 Year
  Sex: Male

DRUGS (2)
  1. VYMADA [Suspect]
     Active Substance: SACUBITRIL\VALSARTAN
     Indication: PRODUCT USED FOR UNKNOWN INDICATION
     Dosage: 100 MG, UNKNOWN (STOPPED 8 MONTHS AGO APPROXIMATELY)
     Route: 065
  2. VYMADA [Suspect]
     Active Substance: SACUBITRIL\VALSARTAN
     Dosage: 200 MG, UNKNOWN  (FROM 8 MONTHS AGO APPROXIMATELY)
     Route: 065

REACTIONS (3)
  - Hypotension [Unknown]
  - Dementia [Unknown]
  - Malaise [Unknown]
